FAERS Safety Report 21954248 (Version 1)
Quarter: 2023Q1

REPORT INFORMATION
  Report Type: Report from Study
  Country: US (occurrence: US)
  Receive Date: 20230204
  Receipt Date: 20230204
  Transmission Date: 20230418
  Serious: No
  Sender: FDA-Public Use
  Company Number: US-ACORDA-ACO_171973_2022

PATIENT
  Sex: Female

DRUGS (2)
  1. AMPYRA [Suspect]
     Active Substance: DALFAMPRIDINE
     Indication: Multiple sclerosis
     Dosage: 10 MILLIGRAM, BID
     Route: 048
     Dates: start: 20200324
  2. AVONEX [Concomitant]
     Active Substance: INTERFERON BETA-1A
     Indication: Product used for unknown indication
     Dosage: UNK
     Route: 065

REACTIONS (8)
  - Scab [Unknown]
  - Mental disorder [Unknown]
  - Ill-defined disorder [Unknown]
  - Injection site reaction [Recovering/Resolving]
  - Skin discolouration [Unknown]
  - Skin lesion [Unknown]
  - Application site pruritus [Unknown]
  - Skin burning sensation [Unknown]
